FAERS Safety Report 7572140-X (Version None)
Quarter: 2011Q2

REPORT INFORMATION
  Report Type: 
  Country: None (occurrence: None)
  Receive Date: 20110624
  Receipt Date: 20110620
  Transmission Date: 20111010
  Serious: Yes (Other)
  Sender: FDA-Public Use
  Company Number: US-ABBOTT-11P-163-0734486-00

PATIENT
  Sex: Female
  Weight: 93.07 kg

DRUGS (11)
  1. DILTIAZEM [Concomitant]
     Indication: HYPERTENSION
  2. ALIGN [Concomitant]
     Indication: GASTROOESOPHAGEAL REFLUX DISEASE
  3. ALBUTEROL SULFATE AUTOHALER [Concomitant]
     Indication: ASTHMA
  4. HUMIRA [Suspect]
     Dates: start: 20110301
  5. HYDROCHLOROTHIAZIDE [Concomitant]
     Indication: HYPERTENSION
  6. GLIPIZIDE [Concomitant]
     Indication: DIABETES MELLITUS
     Dates: start: 20110501
  7. NEXIUM [Concomitant]
     Indication: GASTROOESOPHAGEAL REFLUX DISEASE
  8. REQUIP [Concomitant]
     Indication: MUSCLE SPASMS
  9. SINGULAIR [Concomitant]
     Indication: ASTHMA
  10. HUMIRA [Suspect]
     Indication: RHEUMATOID ARTHRITIS
     Dates: start: 20090101, end: 20110101
  11. SYMBICORT [Concomitant]
     Indication: ASTHMA

REACTIONS (8)
  - DIABETES MELLITUS [None]
  - RESPIRATORY TRACT CONGESTION [None]
  - INJECTION SITE PAIN [None]
  - COUGH [None]
  - MUSCLE SPASMS [None]
  - BLOOD GLUCOSE INCREASED [None]
  - BRONCHITIS [None]
  - DYSPNOEA [None]
